FAERS Safety Report 15448164 (Version 1)
Quarter: 2018Q3

REPORT INFORMATION
  Report Type: Spontaneous
  Country: DE (occurrence: DE)
  Receive Date: 20180928
  Receipt Date: 20180928
  Transmission Date: 20181010
  Serious: Yes (Hospitalization, Other)
  Sender: FDA-Public Use
  Company Number: DE-BRISTOL-MYERS SQUIBB COMPANY-BMS-2018-088621

PATIENT
  Age: 43 Year
  Sex: Male
  Weight: 79 kg

DRUGS (1)
  1. NIVOLUMAB [Suspect]
     Active Substance: NIVOLUMAB
     Indication: OROPHARYNGEAL CANCER
     Dosage: Q2WK
     Route: 065
     Dates: start: 20170707, end: 20180718

REACTIONS (14)
  - Ear haemorrhage [Unknown]
  - Pain in extremity [Unknown]
  - Malignant neoplasm progression [Unknown]
  - Hypoaesthesia [Unknown]
  - General physical health deterioration [Not Recovered/Not Resolved]
  - Blood brain barrier defect [Unknown]
  - Asthenia [Unknown]
  - Chest pain [Unknown]
  - Mucous membrane disorder [Unknown]
  - Candida infection [Unknown]
  - Angina pectoris [Unknown]
  - Hypothyroidism [Unknown]
  - Muscle atrophy [Unknown]
  - Haemorrhage [Unknown]

NARRATIVE: CASE EVENT DATE: 201712
